FAERS Safety Report 24793003 (Version 1)
Quarter: 2024Q4

REPORT INFORMATION
  Report Type: Spontaneous
  Country: US (occurrence: None)
  Receive Date: 20241230
  Receipt Date: 20241230
  Transmission Date: 20250114
  Serious: Yes (Hospitalization)
  Sender: Public
  Company Number: None

PATIENT
  Sex: Female

DRUGS (5)
  1. ICATIBANT ACETATE [Suspect]
     Active Substance: ICATIBANT ACETATE
     Indication: Complement deficiency disease
     Dosage: 30 MG AS NEEDED UNDER THE SKIN
     Route: 058
     Dates: start: 202210
  2. HAEGARDA [Concomitant]
     Active Substance: HUMAN C1-ESTERASE INHIBITOR
  3. FIRAZYR SYR (3-PAK) [Concomitant]
  4. EPINEPHRINE AUTO-INJ [Concomitant]
  5. TAKHZYRO PFS [Concomitant]

REACTIONS (1)
  - Hereditary angioedema [None]
